FAERS Safety Report 7292594-6 (Version None)
Quarter: 2011Q1

REPORT INFORMATION
  Report Type: 
  Country: None (occurrence: None)
  Receive Date: 20110215
  Receipt Date: 20110208
  Transmission Date: 20110831
  Serious: Yes (Hospitalization, Other)
  Sender: FDA-Public Use
  Company Number: US-BRISTOL-MYERS SQUIBB COMPANY-15518913

PATIENT
  Sex: Female

DRUGS (1)
  1. COUMADIN [Suspect]
     Indication: HIP ARTHROPLASTY
     Dosage: 7.5MG 6 DAYS OF THE WEEK,AND 5MG ONE DAY A WEEK
     Route: 048

REACTIONS (3)
  - PULMONARY ARTERY THROMBOSIS [None]
  - THROMBOSIS [None]
  - CARDIOMEGALY [None]
